FAERS Safety Report 6410315-3 (Version None)
Quarter: 2009Q4

REPORT INFORMATION
  Report Type: 
  Country: None (occurrence: None)
  Receive Date: 20091022
  Receipt Date: 20091016
  Transmission Date: 20100525
  Serious: Yes (Death)
  Sender: FDA-Public Use
  Company Number: PE-ROCHE-598996

PATIENT
  Sex: Female
  Weight: 47 kg

DRUGS (4)
  1. CAPECITABINE [Suspect]
     Indication: GASTRIC CANCER
     Dosage: D1-14 EVERY 3 WEEKS
     Route: 048
     Dates: start: 20081108, end: 20081109
  2. CAPECITABINE [Suspect]
     Route: 048
     Dates: start: 20081109, end: 20081112
  3. BLINDED BEVACIZUMAB [Suspect]
     Indication: GASTRIC CANCER
     Route: 042
     Dates: start: 20081104
  4. CISPLATIN [Suspect]
     Indication: GASTRIC CANCER
     Route: 042
     Dates: start: 20081104

REACTIONS (2)
  - CARDIO-RESPIRATORY ARREST [None]
  - VOMITING [None]
